FAERS Safety Report 15110659 (Version 1)
Quarter: 2018Q3

REPORT INFORMATION
  Report Type: Spontaneous
  Country: FR (occurrence: FR)
  Receive Date: 20180705
  Receipt Date: 20180705
  Transmission Date: 20181010
  Serious: Yes (Life-Threatening)
  Sender: FDA-Public Use
  Company Number: PHHY2018FR037366

PATIENT
  Age: 29 Year
  Sex: Female
  Weight: 50 kg

DRUGS (6)
  1. METHOTREXATE. [Suspect]
     Active Substance: METHOTREXATE
     Dosage: 15 MG, UNK
     Route: 042
     Dates: start: 20180304
  2. METHOTREXATE. [Suspect]
     Active Substance: METHOTREXATE
     Dosage: 15 MG, UNK
     Route: 042
     Dates: start: 20180307
  3. METHOTREXATE. [Suspect]
     Active Substance: METHOTREXATE
     Dosage: 15 MG, UNK
     Route: 042
     Dates: start: 20180312
  4. METHOTREXATE. [Suspect]
     Active Substance: METHOTREXATE
     Indication: PROPHYLAXIS AGAINST GRAFT VERSUS HOST DISEASE
     Dosage: 15 MG, UNK
     Route: 042
  5. ENDOXAN [Suspect]
     Active Substance: CYCLOPHOSPHAMIDE
     Indication: BONE MARROW TRANSPLANT
     Dosage: 2820 MG, QD
     Route: 042
     Dates: start: 20180226, end: 20180227
  6. METHOTREXATE. [Suspect]
     Active Substance: METHOTREXATE
     Dosage: 15 MG, UNK
     Route: 042
     Dates: start: 20180302

REACTIONS (1)
  - Venoocclusive liver disease [Recovered/Resolved with Sequelae]

NARRATIVE: CASE EVENT DATE: 20180320
